FAERS Safety Report 25197136 (Version 1)
Quarter: 2025Q2

REPORT INFORMATION
  Report Type: Spontaneous
  Country: US (occurrence: US)
  Receive Date: 20250415
  Receipt Date: 20250415
  Transmission Date: 20250717
  Serious: No
  Sender: PIRAMAL
  Company Number: US-PCCINC-2025-PPL-000221

PATIENT

DRUGS (4)
  1. GABLOFEN [Suspect]
     Active Substance: BACLOFEN
     Indication: Spinal pain
     Route: 037
  2. BUPIVACAINE [Concomitant]
     Active Substance: BUPIVACAINE
     Indication: Spinal pain
  3. DILAUDID [Concomitant]
     Active Substance: HYDROMORPHONE HYDROCHLORIDE
     Indication: Spinal pain
  4. CLONIDINE [Concomitant]
     Active Substance: CLONIDINE
     Indication: Spinal pain

REACTIONS (2)
  - Off label use [Unknown]
  - Product use in unapproved indication [Unknown]
